FAERS Safety Report 4611641-0 (Version None)
Quarter: 2005Q1

REPORT INFORMATION
  Report Type: 
  Country: None (occurrence: None)
  Receive Date: 20050317
  Receipt Date: 20050304
  Transmission Date: 20050727
  Serious: Yes (Other)
  Sender: FDA-Public Use
  Company Number: JP-ROCHE-398249

PATIENT
  Age: 61 Year
  Sex: Female
  Weight: 46.4 kg

DRUGS (7)
  1. TAMIFLU [Suspect]
     Indication: INFLUENZA
     Route: 048
     Dates: start: 20050214
  2. DIGOSIN [Concomitant]
     Dates: end: 20041129
  3. INDERAL [Concomitant]
     Dates: end: 20041129
  4. CARVEDILOL [Concomitant]
     Dates: start: 20041129
  5. VASOLAN [Concomitant]
     Indication: BRADYCARDIA
     Dates: start: 20041213
  6. PL [Concomitant]
     Dates: start: 20050214
  7. VOLTAREN [Concomitant]
     Dates: start: 20050215, end: 20050215

REACTIONS (7)
  - ANOREXIA [None]
  - ASTHENIA [None]
  - DEHYDRATION [None]
  - DIFFICULTY IN WALKING [None]
  - GASTROINTESTINAL HAEMORRHAGE [None]
  - MALAISE [None]
  - NAUSEA [None]
